FAERS Safety Report 10144265 (Version 1)
Quarter: 2014Q2

REPORT INFORMATION
  Report Type: Spontaneous
  Country: JP (occurrence: JP)
  Receive Date: 20140430
  Receipt Date: 20140430
  Transmission Date: 20141212
  Serious: Yes (Life-Threatening, Other)
  Sender: FDA-Public Use
  Company Number: JP-MERCK-1404JPN014814

PATIENT
  Sex: 0

DRUGS (1)
  1. DECADRON ELIXIR [Suspect]
     Route: 048

REACTIONS (1)
  - Anaphylactic shock [Unknown]
